FAERS Safety Report 18400927 (Version 1)
Quarter: 2020Q4

REPORT INFORMATION
  Report Type: Spontaneous
  Country: IT (occurrence: IT)
  Receive Date: 20201020
  Receipt Date: 20201020
  Transmission Date: 20210114
  Serious: Yes (Death, Other)
  Sender: FDA-Public Use
  Company Number: IT-AMGEN-ITASP2020120278

PATIENT
  Age: 67 Year
  Sex: Female
  Weight: 80 kg

DRUGS (3)
  1. KANJINTI [Suspect]
     Active Substance: TRASTUZUMAB-ANNS
     Indication: BREAST CANCER STAGE I
     Dosage: 6 MILLIGRAM, CYCLICAL
     Route: 041
     Dates: start: 20190606, end: 20191206
  2. ZUGLIMET [Concomitant]
     Active Substance: METFORMIN HYDROCHLORIDE
  3. ZESTORETIC [Concomitant]
     Active Substance: HYDROCHLOROTHIAZIDE\LISINOPRIL

REACTIONS (1)
  - Cardiac failure [Fatal]

NARRATIVE: CASE EVENT DATE: 20191206
